FAERS Safety Report 7655888-8 (Version None)
Quarter: 2011Q3

REPORT INFORMATION
  Report Type: 
  Country: None (occurrence: None)
  Receive Date: 20110804
  Receipt Date: 20110804
  Transmission Date: 20111222
  Serious: Yes (Hospitalization)
  Sender: FDA-Public Use
  Company Number: None

PATIENT
  Age: 55 Year
  Sex: Female
  Weight: 70.8 kg

DRUGS (15)
  1. FAMOTIDINE [Concomitant]
  2. LIDODERM [Concomitant]
  3. PREDISONE [Concomitant]
  4. WARFARIN SODIUM [Concomitant]
  5. LEVOTHYROXINE SODIUM [Concomitant]
  6. ALLOPURINOL [Concomitant]
  7. OXYCODONE HCL [Concomitant]
  8. MORPHINE [Concomitant]
  9. NAPROXEN [Concomitant]
  10. HALOPERIDOL [Concomitant]
  11. LENALIDOMIDE [Suspect]
     Indication: CHRONIC LYMPHOCYTIC LEUKAEMIA
     Dosage: 5 MG
     Route: 048
  12. LORAZEPAM [Concomitant]
  13. ACYCLOVIR [Concomitant]
  14. MIRALAX [Concomitant]
  15. DOCUSATE [Concomitant]

REACTIONS (3)
  - NEPHROLITHIASIS [None]
  - TUMOUR FLARE [None]
  - INTERNATIONAL NORMALISED RATIO INCREASED [None]
